FAERS Safety Report 14169758 (Version 1)
Quarter: 2017Q4

REPORT INFORMATION
  Report Type: Spontaneous
  Country: ES (occurrence: ES)
  Receive Date: 20171108
  Receipt Date: 20171108
  Transmission Date: 20180321
  Serious: Yes (Hospitalization, Other)
  Sender: FDA-Public Use
  Company Number: ES-ASTELLAS-2017US045114

PATIENT
  Age: 44 Year
  Sex: Female

DRUGS (3)
  1. TACROLIMUS. [Suspect]
     Active Substance: TACROLIMUS
     Indication: LUNG TRANSPLANT
     Dosage: UNK, UNKNOWN FREQ. (TARGET BLOOD LEVEL OF 7-10 NG/ML)
     Route: 065
  2. MYCOPHENOLATE MOFETIL. [Suspect]
     Active Substance: MYCOPHENOLATE MOFETIL
     Indication: LUNG TRANSPLANT
     Dosage: UNK UNK, UNKNOWN FREQ. (CONVENTIONAL DOSES)
     Route: 065
  3. BENZNIDAZOLE. [Concomitant]
     Active Substance: BENZNIDAZOLE
     Indication: PROPHYLAXIS
     Route: 048

REACTIONS (11)
  - Intensive care unit acquired weakness [Unknown]
  - Urinary tract infection enterococcal [Unknown]
  - Multiple organ dysfunction syndrome [Recovered/Resolved]
  - Impaired gastric emptying [Unknown]
  - Device related infection [Unknown]
  - Arterial thrombosis [Unknown]
  - Transplant dysfunction [Unknown]
  - Enterococcal infection [Unknown]
  - Polyneuropathy [Unknown]
  - Candida infection [Unknown]
  - Off label use [Unknown]
